FAERS Safety Report 21689016 (Version 3)
Quarter: 2022Q4

REPORT INFORMATION
  Report Type: Spontaneous
  Country: US (occurrence: US)
  Receive Date: 20221206
  Receipt Date: 20221221
  Transmission Date: 20230113
  Serious: Yes (Hospitalization)
  Sender: FDA-Public Use
  Company Number: US-PFIZER INC-202201343122

PATIENT
  Age: 67 Year
  Sex: Male
  Weight: 113.38 kg

DRUGS (17)
  1. VYNDAMAX [Suspect]
     Active Substance: TAFAMIDIS
     Indication: Cardiac amyloidosis
     Dosage: 61MG ONCE A DAY
     Dates: start: 201911
  2. BUMETANIDE [Suspect]
     Active Substance: BUMETANIDE
     Indication: Diuretic therapy
     Dosage: 1 MG ONCE A DAY
     Dates: start: 20221115
  3. BUMETANIDE [Suspect]
     Active Substance: BUMETANIDE
     Indication: Fluid retention
  4. HYDROCHLOROTHIAZIDE\SPIRONOLACTONE [Suspect]
     Active Substance: HYDROCHLOROTHIAZIDE\SPIRONOLACTONE
     Indication: Fluid retention
     Dosage: 25MG ONCE A DAY
     Dates: start: 201911
  5. ACETAMINOPHEN [Concomitant]
     Active Substance: ACETAMINOPHEN
     Dosage: 1300 MG
  6. CARVEDILOL [Concomitant]
     Active Substance: CARVEDILOL
     Dosage: TAKE 1 TABLET (3.125 MG TOTAL) BY MOUTH 2 TIMES DAILY
     Route: 048
  7. CYPROHEPTADINE [Concomitant]
     Active Substance: CYPROHEPTADINE
     Dosage: TAKE 1 TABLET BY MOUTH TWICE A DAY AND UPTO 4 TIMES A DAY AS NEEDED
     Route: 048
  8. EPINEPHRINE [Concomitant]
     Active Substance: EPINEPHRINE
     Indication: Hypersensitivity
     Dosage: UNK, AS NEEDED
  9. NEURONTIN [Concomitant]
     Active Substance: GABAPENTIN
     Dosage: TAKE 300 MG BY MOUTH 3 TIMES DAILY. 1 IN AM AND 2 IN PM
     Route: 048
  10. ATROVENT [Concomitant]
     Active Substance: IPRATROPIUM BROMIDE
     Dosage: UNK
  11. KLOR-CON M20 [Concomitant]
     Active Substance: POTASSIUM CHLORIDE
     Dosage: 1 TABLET (20 MEQ TOTAL) BY MOUTH EVERY MONDAY, WEDNESDAY AND FRIDAY
     Route: 048
  12. XYZAL [Concomitant]
     Active Substance: LEVOCETIRIZINE DIHYDROCHLORIDE
     Dosage: 5 MG IN THE MORINNG AND AT BED TIME
  13. LISINOPRIL [Concomitant]
     Active Substance: LISINOPRIL
     Dosage: TAKE 1 TABLET DAILY
     Route: 048
  14. MAGNESIUM OXIDE [Concomitant]
     Active Substance: MAGNESIUM OXIDE
     Dosage: 250 MG
     Route: 048
  15. MOBIC [Concomitant]
     Active Substance: MELOXICAM
     Indication: Pain
     Dosage: TAKE 1 TABLET EVERY DAY AS NEEDED
     Route: 048
  16. PANTOPRAZOLE [Concomitant]
     Active Substance: PANTOPRAZOLE
     Dosage: TAKE 40 MG DAILY WITH FOOD
     Route: 048
  17. VESICARE [Concomitant]
     Active Substance: SOLIFENACIN SUCCINATE
     Dosage: TAKE 10MG DAILY WITH FOOD
     Route: 048

REACTIONS (2)
  - Dehydration [Unknown]
  - Hypotension [Unknown]

NARRATIVE: CASE EVENT DATE: 20221129
